FAERS Safety Report 8545697 (Version 4)
Quarter: 2013Q4

REPORT INFORMATION
  Report Type: Spontaneous
  Country: US (occurrence: US)
  Receive Date: 20120503
  Receipt Date: 20131031
  Transmission Date: 20140711
  Serious: Yes (Disabling)
  Sender: FDA-Public Use
  Company Number: US-009507513-1112USA00431

PATIENT
  Sex: Male

DRUGS (1)
  1. PROPECIA [Suspect]
     Dosage: UNK MG, UNK
     Route: 048

REACTIONS (3)
  - Pelvic pain [Recovering/Resolving]
  - Pudendal canal syndrome [Recovering/Resolving]
  - Erectile dysfunction [Recovering/Resolving]
